FAERS Safety Report 8560479-0 (Version None)
Quarter: 2012Q3

REPORT INFORMATION
  Report Type: 
  Country: None (occurrence: None)
  Receive Date: 20120802
  Receipt Date: 20120728
  Transmission Date: 20120928
  Serious: Yes (Life-Threatening, Hospitalization, Other)
  Sender: FDA-Public Use
  Company Number: JP-SHIRE-ALL1-2011-02141

PATIENT
  Age: 69 Year
  Sex: Male

DRUGS (33)
  1. FOSRENOL [Suspect]
     Indication: HYPERPHOSPHATAEMIA
     Dosage: 750 MG (IMMEDIATELY AFTER MEALS), 1X/DAY:QD
     Route: 048
     Dates: start: 20090530, end: 20090531
  2. FOSRENOL [Suspect]
     Dosage: 1500 MG, UNKNOWN
     Route: 048
     Dates: start: 20090627, end: 20090702
  3. FOSRENOL [Suspect]
     Dosage: 1500 MG, UNKNOWN
     Route: 048
     Dates: start: 20090822, end: 20090826
  4. OXAROL [Concomitant]
     Dosage: 5 ?G, UNKNOWN
     Route: 042
     Dates: start: 20110301, end: 20110531
  5. SELBEX [Concomitant]
     Indication: PRODUCT USED FOR UNKNOWN INDICATION
     Dosage: 1.5 G, UNKNOWN
     Route: 048
  6. SEVELAMER [Concomitant]
     Indication: PRODUCT USED FOR UNKNOWN INDICATION
     Dosage: 1500 MG, 1X/DAY:QD
     Route: 065
     Dates: end: 20090613
  7. OXAROL [Concomitant]
     Dosage: 10 ?G, UNKNOWN
     Route: 042
     Dates: start: 20090916, end: 20091031
  8. CINACALCET HYDROCHLORIDE [Concomitant]
     Indication: HYPERPARATHYROIDISM SECONDARY
     Dosage: 25 MG, UNKNOWN
     Route: 048
     Dates: end: 20100917
  9. ASPIRIN [Concomitant]
     Indication: HYPERPARATHYROIDISM SECONDARY
     Dosage: 100 MG, UNKNOWN
     Route: 048
  10. ZESULAN [Concomitant]
     Indication: PRODUCT USED FOR UNKNOWN INDICATION
     Dosage: 1 DF, UNKNOWN
     Route: 047
  11. CORINAEL [Concomitant]
     Indication: PRODUCT USED FOR UNKNOWN INDICATION
     Dosage: 60 MG, UNKNOWN
     Route: 048
  12. FOSRENOL [Suspect]
     Dosage: 750 MG, UNKNOWN
     Route: 048
     Dates: start: 20090703
  13. FOSRENOL [Suspect]
     Dosage: 1500 MG, UNKNOWN
     Route: 048
     Dates: start: 20091017, end: 20100429
  14. OXAROL [Concomitant]
     Dosage: 15 ?G, UNKNOWN
     Route: 042
     Dates: start: 20100216, end: 20100430
  15. OMEPRAZOLE [Concomitant]
     Indication: PRODUCT USED FOR UNKNOWN INDICATION
     Dosage: 10 MG, UNKNOWN
     Route: 048
     Dates: end: 20101220
  16. RHUBARB [Concomitant]
     Indication: PRODUCT USED FOR UNKNOWN INDICATION
     Dosage: 3 G, UNKNOWN
     Route: 048
  17. FOSRENOL [Suspect]
     Dosage: 750 MG, UNKNOWN
     Route: 048
     Dates: start: 20090613, end: 20090626
  18. OXAROL [Concomitant]
     Dosage: 30 ?G, UNKNOWN
     Route: 042
     Dates: start: 20100501, end: 20101130
  19. OXAROL [Concomitant]
     Dosage: 20 ?G, UNKNOWN
     Route: 042
     Dates: start: 20101201, end: 20110131
  20. OXAROL [Concomitant]
     Dosage: 10 ?G, UNKNOWN
     Route: 042
     Dates: start: 20110201, end: 20110228
  21. RENAGEL [Concomitant]
     Indication: HYPERPHOSPHATAEMIA
     Dosage: 1500 MG, UNKNOWN
     Route: 048
     Dates: end: 20090612
  22. ESTAZOLAM [Concomitant]
     Indication: PRODUCT USED FOR UNKNOWN INDICATION
     Dosage: 2 MG, UNKNOWN
     Route: 048
  23. FOSRENOL [Suspect]
     Dosage: 250 MG, 1X/DAY:QD
     Route: 048
     Dates: start: 20090601, end: 20090612
  24. FOSRENOL [Suspect]
     Dosage: 2250 MG, UNKNOWN
     Route: 048
     Dates: start: 20100430
  25. OXAROL [Concomitant]
     Dosage: 20 ?G, UNKNOWN
     Route: 042
     Dates: start: 20090801, end: 20090915
  26. OXAROL [Concomitant]
     Dosage: 10 ?G, UNKNOWN
     Route: 042
     Dates: start: 20110601
  27. CINACALCET HYDROCHLORIDE [Concomitant]
     Dosage: 50 MG, UNKNOWN
     Route: 048
     Dates: start: 20100918
  28. ISOSORBIDE DINITRATE [Concomitant]
     Indication: PRODUCT USED FOR UNKNOWN INDICATION
     Dosage: 40 MG, UNKNOWN
     Route: 041
  29. HEPARIN [Concomitant]
     Indication: HAEMORRHAGE PROPHYLAXIS
     Dosage: UNK (1A/3WEEKS), UNKNOWN
     Route: 042
  30. LAC B [Concomitant]
     Indication: PRODUCT USED FOR UNKNOWN INDICATION
     Dosage: 3 G, UNKNOWN
     Route: 048
  31. FOSRENOL [Suspect]
     Dosage: 750 MG, UNKNOWN
     Route: 048
     Dates: start: 20090827, end: 20091016
  32. OXAROL [Concomitant]
     Indication: PRODUCT USED FOR UNKNOWN INDICATION
     Dosage: 15 ?G, UNKNOWN
     Route: 042
     Dates: start: 20090401, end: 20090731
  33. CARVEDILOL [Concomitant]
     Indication: PRODUCT USED FOR UNKNOWN INDICATION
     Dosage: 5 MG, UNKNOWN
     Route: 048

REACTIONS (14)
  - ANGINA UNSTABLE [None]
  - CARDIAC FAILURE CONGESTIVE [None]
  - CONSTIPATION [None]
  - ATRIAL FIBRILLATION [None]
  - PERIPHERAL ARTERIAL OCCLUSIVE DISEASE [None]
  - LUMBAR SPINAL STENOSIS [None]
  - PROCEDURAL HYPOTENSION [None]
  - DIARRHOEA [None]
  - DIZZINESS [None]
  - MENIERE'S DISEASE [None]
  - BRONCHITIS [None]
  - CARDIAC FAILURE [None]
  - HERPES ZOSTER [None]
  - GYNAECOMASTIA [None]
